FAERS Safety Report 7269692-6 (Version None)
Quarter: 2011Q1

REPORT INFORMATION
  Report Type: 
  Country: None (occurrence: None)
  Receive Date: 20110202
  Receipt Date: 20110124
  Transmission Date: 20110831
  Serious: Yes (Death)
  Sender: FDA-Public Use
  Company Number: US-GENZYME-FABR-1001653

PATIENT
  Sex: Female

DRUGS (2)
  1. FABRAZYME [Suspect]
     Indication: FABRY'S DISEASE
     Dosage: 90 MG, Q4W
     Route: 042
     Dates: start: 20100315, end: 20100901
  2. FABRAZYME [Suspect]
     Dosage: 90 MG, Q2W
     Route: 042
     Dates: start: 20051003

REACTIONS (1)
  - DEATH [None]
